FAERS Safety Report 5725311-9 (Version None)
Quarter: 2008Q2

REPORT INFORMATION
  Report Type: 
  Country: None (occurrence: None)
  Receive Date: 20080501
  Receipt Date: 20080422
  Transmission Date: 20081010
  Serious: Yes (Other)
  Sender: FDA-Public Use
  Company Number: JP-PFIZER INC-2008025553

PATIENT
  Sex: Male

DRUGS (1)
  1. LIPITOR [Suspect]
     Indication: HYPERLIPIDAEMIA
     Route: 048
     Dates: start: 20051005, end: 20060601

REACTIONS (4)
  - LIVER DISORDER [None]
  - RHABDOMYOLYSIS [None]
  - SLEEP APNOEA SYNDROME [None]
  - VOCAL CORD POLYP [None]
